FAERS Safety Report 21963776 (Version 1)
Quarter: 2023Q1

REPORT INFORMATION
  Report Type: Spontaneous
  Country: US (occurrence: None)
  Receive Date: 20230206
  Receipt Date: 20230206
  Transmission Date: 20230418
  Serious: Yes (Hospitalization)
  Sender: FDA-Public Use
  Company Number: None

PATIENT
  Age: 89 Year
  Sex: Male
  Weight: 61.96 kg

DRUGS (23)
  1. LENALIDOMIDE [Suspect]
     Active Substance: LENALIDOMIDE
     Indication: Plasma cell myeloma
     Dosage: OTHER FREQUENCY : 21D OF 28 DAYS;?
     Route: 048
     Dates: start: 202212
  2. AMLODIPINE [Concomitant]
     Active Substance: AMLODIPINE BESYLATE
  3. ASPIRIN [Concomitant]
     Active Substance: ASPIRIN
  4. ATORVASTATIN [Concomitant]
     Active Substance: ATORVASTATIN
  5. DEXAMETHASONE [Concomitant]
     Active Substance: DEXAMETHASONE
  6. DILANTIN [Concomitant]
     Active Substance: PHENYTOIN
  7. ELIQUIS [Concomitant]
     Active Substance: APIXABAN
  8. FERROUS SULFATE [Concomitant]
     Active Substance: FERROUS SULFATE
  9. FLOMAX [Concomitant]
     Active Substance: TAMSULOSIN HYDROCHLORIDE
  10. FLUTICASONE [Concomitant]
     Active Substance: FLUTICASONE
  11. FOLIC ACID [Concomitant]
     Active Substance: FOLIC ACID
  12. LEVOTHYROXINE [Concomitant]
     Active Substance: LEVOTHYROXINE
  13. MELATONIN [Concomitant]
     Active Substance: MELATONIN
  14. METOPROLOL [Concomitant]
     Active Substance: METOPROLOL
  15. NORCO [Concomitant]
     Active Substance: ACETAMINOPHEN\HYDROCODONE BITARTRATE
  16. OCUVITA [Concomitant]
  17. ONDANSETRON [Concomitant]
     Active Substance: ONDANSETRON
  18. PANTOPRAZOLE [Concomitant]
     Active Substance: PANTOPRAZOLE
  19. TUMS [Concomitant]
     Active Substance: CALCIUM CARBONATE
  20. ULORIC [Concomitant]
     Active Substance: FEBUXOSTAT
  21. VALTREX [Concomitant]
     Active Substance: VALACYCLOVIR HYDROCHLORIDE
  22. VITAMIN D3 [Concomitant]
     Active Substance: CHOLECALCIFEROL
  23. ZEMPLAR [Concomitant]
     Active Substance: PARICALCITOL

REACTIONS (2)
  - Urinary tract infection [None]
  - Blood calcium decreased [None]
